FAERS Safety Report 9151138 (Version 1)
Quarter: 2013Q1

REPORT INFORMATION
  Report Type: Spontaneous
  Country: US (occurrence: US)
  Receive Date: 20130308
  Receipt Date: 20130308
  Transmission Date: 20140127
  Serious: No
  Sender: FDA-Public Use
  Company Number: US-GLAXOSMITHKLINE-A0971838A

PATIENT
  Age: 64 Year
  Sex: Female

DRUGS (2)
  1. WALGREEN NICOTINE [Suspect]
     Indication: EX-TOBACCO USER
     Dates: start: 20120327, end: 20120327
  2. WALGREEN NICOTINE [Suspect]
     Indication: EX-TOBACCO USER
     Dates: start: 20120327, end: 20120328

REACTIONS (6)
  - Glossodynia [Recovered/Resolved]
  - Drug ineffective [Unknown]
  - Tongue eruption [Recovered/Resolved]
  - Tongue blistering [Recovered/Resolved]
  - Paraesthesia oral [Not Recovered/Not Resolved]
  - Glossodynia [Not Recovered/Not Resolved]
